FAERS Safety Report 8094614-8 (Version None)
Quarter: 2012Q1

REPORT INFORMATION
  Report Type: 
  Country: None (occurrence: None)
  Receive Date: 20120131
  Receipt Date: 20120120
  Transmission Date: 20120608
  Serious: Yes (Hospitalization)
  Sender: FDA-Public Use
  Company Number: US-ELI_LILLY_AND_COMPANY-US201111005070

PATIENT
  Sex: Female
  Weight: 76.19 kg

DRUGS (7)
  1. PEPCID [Concomitant]
  2. EFFIENT [Suspect]
     Indication: STENT PLACEMENT
     Dosage: 10 MG, QD
     Route: 048
     Dates: start: 20110616
  3. COZAAR [Concomitant]
  4. ASPIRIN [Concomitant]
  5. BACTRIM [Concomitant]
     Dosage: UNK, AS NEEDED
  6. COREG [Concomitant]
  7. ZOCOR [Concomitant]
     Dosage: 40 MG, UNK

REACTIONS (3)
  - CONTUSION [None]
  - IN-STENT CORONARY ARTERY RESTENOSIS [None]
  - ABDOMINAL DISCOMFORT [None]
